FAERS Safety Report 5784243-0 (Version None)
Quarter: 2008Q2

REPORT INFORMATION
  Report Type: 
  Country: None (occurrence: None)
  Receive Date: 20080624
  Receipt Date: 20070430
  Transmission Date: 20081010
  Serious: No
  Sender: FDA-Public Use
  Company Number: US-ASTRAZENECA-2007UW08608

PATIENT
  Age: 72 Year
  Sex: Female
  Weight: 64.4 kg

DRUGS (2)
  1. PULMICORT [Suspect]
     Indication: ASTHMA
     Route: 055
  2. TILADE [Concomitant]

REACTIONS (3)
  - DYSGEUSIA [None]
  - INSOMNIA [None]
  - THROAT IRRITATION [None]
